FAERS Safety Report 9734568 (Version 3)
Quarter: 2013Q4

REPORT INFORMATION
  Report Type: Spontaneous
  Country: JP (occurrence: JP)
  Receive Date: 20131206
  Receipt Date: 20131227
  Transmission Date: 20140711
  Serious: Yes (Hospitalization)
  Sender: FDA-Public Use
  Company Number: JP-AMGEN-JPNSP2013085613

PATIENT
  Age: 51 Year
  Sex: Female
  Weight: 65 kg

DRUGS (11)
  1. RANMARK [Suspect]
     Indication: METASTASES TO BONE
     Dosage: 120 MG, QMO
     Route: 058
     Dates: start: 20120515, end: 20131106
  2. OXYCONTIN [Concomitant]
     Dosage: 1 DF, BID
     Route: 065
  3. FEMARA [Concomitant]
     Dosage: 1 DF, QD
     Route: 065
  4. FEMARA [Concomitant]
     Dosage: 2.5/TIMES
     Route: 048
     Dates: start: 200911
  5. TAKEPRON [Concomitant]
     Dosage: 1 DF, QD
     Route: 065
  6. VITAMEDIN                          /00176001/ [Concomitant]
     Dosage: 1 DF, TID
     Route: 065
  7. XELODA [Concomitant]
     Dosage: 2 DF, BID
     Route: 065
  8. LOXONIN [Concomitant]
     Dosage: 1 DF, TID
     Route: 065
  9. CALCIUM LACTATE [Concomitant]
     Dosage: 1 G, TID
     Route: 065
  10. ENDOXAN                            /00021101/ [Concomitant]
     Dosage: 1 DF, BID
     Route: 065
  11. ZOMETA [Concomitant]
     Dosage: UNKNOWN
     Route: 065

REACTIONS (1)
  - Atypical femur fracture [Recovering/Resolving]
